FAERS Safety Report 15393574 (Version 1)
Quarter: 2018Q3

REPORT INFORMATION
  Report Type: Spontaneous
  Country: US (occurrence: US)
  Receive Date: 20180917
  Receipt Date: 20180917
  Transmission Date: 20181010
  Serious: Yes (Other)
  Sender: FDA-Public Use
  Company Number: PHEH2018US038659

PATIENT
  Sex: Female

DRUGS (1)
  1. TYKERB [Suspect]
     Active Substance: LAPATINIB DITOSYLATE
     Indication: BREAST CANCER METASTATIC
     Dosage: 5 DF, QD
     Route: 048
     Dates: start: 20180724, end: 20180821

REACTIONS (4)
  - Malignant neoplasm progression [Unknown]
  - Eastern Cooperative Oncology Group performance status worsened [Unknown]
  - Metastases to central nervous system [Unknown]
  - Metastases to meninges [Unknown]
